FAERS Safety Report 24269192 (Version 1)
Quarter: 2024Q3

REPORT INFORMATION
  Report Type: Spontaneous
  Country: NL (occurrence: NL)
  Receive Date: 20240830
  Receipt Date: 20240830
  Transmission Date: 20241016
  Serious: Yes (Other)
  Sender: TEVA
  Company Number: None

PATIENT
  Age: 70 Year
  Sex: Male
  Weight: 92 kg

DRUGS (4)
  1. CLOPIDOGREL [Suspect]
     Active Substance: CLOPIDOGREL BISULFATE
     Indication: Product used for unknown indication
     Dosage: 1 PIECE ONCE A DAY,?BRAND NAME NOT SPECIFIED
     Route: 065
     Dates: start: 20240229
  2. METFORMIN [Concomitant]
     Active Substance: METFORMIN HYDROCHLORIDE
     Indication: Product used for unknown indication
     Dosage: MODIFIED-RELEASE TABLET, 500 MG (MILLIGRAM); TABLET MGA/ BRAND NAME NOT SPECIFIED
     Route: 065
  3. PANTOPRAZOLE [Concomitant]
     Active Substance: PANTOPRAZOLE
     Indication: Product used for unknown indication
     Dosage: 40MG,?BRAND NAME NOT SPECIFIED
     Route: 065
  4. ATORVASTATIN [Suspect]
     Active Substance: ATORVASTATIN
     Indication: Post stroke seizure
     Dosage: 1 PIECE 1 X PER DAY;? BRAND NAME NOT SPECIFIED
     Route: 065
     Dates: start: 20240229

REACTIONS (13)
  - Haematochezia [Recovering/Resolving]
  - Palpitations [Not Recovered/Not Resolved]
  - Hallucination [Recovering/Resolving]
  - Gait disturbance [Not Recovered/Not Resolved]
  - Balance disorder [Not Recovered/Not Resolved]
  - Muscular weakness [Not Recovered/Not Resolved]
  - Hyperglycaemia [Recovering/Resolving]
  - Faeces hard [Recovering/Resolving]
  - Chest pain [Not Recovered/Not Resolved]
  - Depressed mood [Recovering/Resolving]
  - Myalgia [Not Recovered/Not Resolved]
  - Constipation [Recovering/Resolving]
  - Muscle spasms [Not Recovered/Not Resolved]
